APPROVED DRUG PRODUCT: NARCAN
Active Ingredient: NALOXONE HYDROCHLORIDE
Strength: 2MG/SPRAY **Federal Register determination that product was not discontinued or withdrawn for safety or effectiveness reasons**
Dosage Form/Route: SPRAY, METERED;NASAL
Application: N208411 | Product #002
Applicant: EMERGENT OPERATIONS IRELAND LTD
Approved: Jan 24, 2017 | RLD: Yes | RS: No | Type: DISCN